FAERS Safety Report 6540211-2 (Version None)
Quarter: 2010Q1

REPORT INFORMATION
  Report Type: 
  Country: None (occurrence: None)
  Receive Date: 20100115
  Receipt Date: 20100111
  Transmission Date: 20100710
  Serious: Yes (Other)
  Sender: FDA-Public Use
  Company Number: US-JNJFOC-20100103706

PATIENT
  Sex: Male
  Weight: 88 kg

DRUGS (13)
  1. REMICADE [Suspect]
     Indication: RHEUMATOID ARTHRITIS
     Route: 042
  2. FOLIC ACID [Concomitant]
  3. GLIPIZIDE [Concomitant]
  4. GLYCOPYRROLATE [Concomitant]
  5. HYDROCHLOROTHIAZIDE [Concomitant]
  6. VICODIN [Concomitant]
  7. IBUPROFEN [Concomitant]
  8. LANTUS [Concomitant]
  9. METFORMIN [Concomitant]
  10. METHOTREXATE [Concomitant]
     Route: 030
  11. MOEXIPRIL HYDROCHLORIDE [Concomitant]
  12. OMEPRAZOLE [Concomitant]
  13. PREDNISONE [Concomitant]

REACTIONS (5)
  - CHILLS [None]
  - HEART RATE IRREGULAR [None]
  - INFUSION RELATED REACTION [None]
  - SINUS TACHYCARDIA [None]
  - TREMOR [None]
